FAERS Safety Report 5453542-4 (Version None)
Quarter: 2007Q3

REPORT INFORMATION
  Report Type: 
  Country: None (occurrence: None)
  Receive Date: 20070913
  Receipt Date: 20070903
  Transmission Date: 20080115
  Serious: Yes (Other)
  Sender: FDA-Public Use
  Company Number: GXKR2007GB07700

PATIENT
  Age: 24 Year
  Sex: Female

DRUGS (2)
  1. PROPRANOLOL [Suspect]
     Dosage: 80 MG, BID, ORAL
     Route: 048
     Dates: start: 20041001, end: 20070401
  2. CODEINE PHOSPHATE AND ACETAMINOPHEN [Concomitant]

REACTIONS (3)
  - CONDITION AGGRAVATED [None]
  - HEAT RASH [None]
  - PHOTOSENSITIVITY REACTION [None]
